FAERS Safety Report 12729625 (Version 3)
Quarter: 2017Q1

REPORT INFORMATION
  Report Type: Report from Study
  Country: JP (occurrence: JP)
  Receive Date: 20160909
  Receipt Date: 20170216
  Transmission Date: 20170428
  Serious: Yes (Death, Life-Threatening, Hospitalization, Other)
  Sender: FDA-Public Use
  Company Number: JP-ASTELLAS-2016JP011626

PATIENT
  Age: 59 Year
  Sex: Male
  Weight: 65 kg

DRUGS (38)
  1. PLACEBO [Suspect]
     Active Substance: UNSPECIFIED INGREDIENT
     Indication: ANTIVIRAL PROPHYLAXIS
     Route: 030
     Dates: start: 20160215, end: 20160215
  2. AMBISOME [Suspect]
     Active Substance: AMPHOTERICIN B
     Indication: BRONCHOPULMONARY ASPERGILLOSIS
     Route: 065
     Dates: start: 20160716, end: 20160719
  3. AMBISOME [Suspect]
     Active Substance: AMPHOTERICIN B
     Route: 065
     Dates: start: 20160724
  4. MEROPEN                            /01250502/ [Suspect]
     Active Substance: MEROPENEM
     Indication: SEPSIS
     Dosage: 1-2 G/DAY, ONCE DAILY
     Route: 065
     Dates: start: 20160716, end: 20160717
  5. BIO-THREE [Concomitant]
     Active Substance: HERBALS
     Indication: PROPHYLAXIS AGAINST DIARRHOEA
     Route: 048
     Dates: start: 20160414, end: 20160716
  6. FLUDARABINE PHOSPHATE. [Concomitant]
     Active Substance: FLUDARABINE PHOSPHATE
     Indication: STEM CELL TRANSPLANT
     Dosage: DOSE UNKNOWN
     Route: 065
     Dates: start: 20160216
  7. VFEND [Concomitant]
     Active Substance: VORICONAZOLE
     Indication: BRONCHOPULMONARY ASPERGILLOSIS
     Dosage: 2.8-1.8 MG/DAY
     Route: 065
     Dates: start: 20160709, end: 20160718
  8. FOSCAVIR [Concomitant]
     Active Substance: FOSCARNET SODIUM
     Indication: CYTOMEGALOVIRUS VIRAEMIA
     Route: 041
     Dates: start: 20160523
  9. SAMSCA [Concomitant]
     Active Substance: TOLVAPTAN
     Indication: ARRHYTHMIA PROPHYLAXIS
     Route: 048
     Dates: start: 20160527, end: 20160716
  10. CANCIDAS [Concomitant]
     Active Substance: CASPOFUNGIN ACETATE
     Indication: BRONCHOPULMONARY ASPERGILLOSIS
     Dosage: 70-50MG, ONCE DAILY
     Route: 065
     Dates: start: 20160718, end: 20160725
  11. METHYLPREDNISOLONE. [Concomitant]
     Active Substance: METHYLPREDNISOLONE
     Indication: STEM CELL TRANSPLANT
     Dosage: DOSE UNKNOWN
     Route: 065
     Dates: start: 20160216
  12. NEUTROGIN [Concomitant]
     Active Substance: LENOGRASTIM
     Indication: NEUTROPENIA
     Route: 065
     Dates: start: 20160713
  13. VFEND [Concomitant]
     Active Substance: VORICONAZOLE
     Dosage: DOSE UNKNOWN
     Route: 065
     Dates: start: 20160726
  14. BIOFERMIN R [Concomitant]
     Active Substance: BACILLUS SUBTILIS\LACTOBACILLUS ACIDOPHILUS\STREPTOCOCCUS FAECAIS
     Indication: PROPHYLAXIS AGAINST DIARRHOEA
     Route: 048
     Dates: start: 20160720
  15. AMBISOME [Suspect]
     Active Substance: AMPHOTERICIN B
     Route: 065
     Dates: start: 20160720, end: 20160723
  16. AMLODIPINE                         /00972402/ [Concomitant]
     Active Substance: AMLODIPINE BESYLATE
     Indication: HYPERTENSION
     Route: 048
     Dates: start: 20160404, end: 20160716
  17. ITRIZOLE [Concomitant]
     Active Substance: ITRACONAZOLE
     Indication: INFECTION PROPHYLAXIS
     Route: 048
     Dates: start: 20160421
  18. ADONA                              /00056903/ [Concomitant]
     Active Substance: CARBAZOCHROME SODIUM SULFONATE
     Indication: BRONCHOPULMONARY ASPERGILLOSIS
     Route: 065
     Dates: start: 20160709, end: 20160715
  19. ALBUMIN [Concomitant]
     Active Substance: ALBUMIN HUMAN
     Indication: ASCITES
     Dosage: 2 V, ONCE DAILY
     Route: 065
     Dates: start: 20160713
  20. MEROPEN                            /01250502/ [Suspect]
     Active Substance: MEROPENEM
     Dosage: 1 G/DAY, ONCE DAILY
     Route: 065
     Dates: start: 20160718
  21. ZOSYN [Concomitant]
     Active Substance: PIPERACILLIN SODIUM\TAZOBACTAM SODIUM
     Indication: SEPSIS
     Route: 065
     Dates: start: 20160710
  22. TARGOCID [Concomitant]
     Active Substance: TEICOPLANIN
     Indication: SEPSIS
     Dosage: 1200-300 MG/DAY
     Route: 065
     Dates: start: 20160709
  23. HUMULIN R [Concomitant]
     Active Substance: INSULIN HUMAN
     Indication: HYPERGLYCAEMIA
     Dosage: UNKNOWN DOSE, SLIDING SCALE
     Route: 065
     Dates: start: 20160717
  24. PREDONINE                          /00016203/ [Concomitant]
     Active Substance: PREDNISOLONE SODIUM SUCCINATE
     Indication: PROPHYLAXIS AGAINST GRAFT VERSUS HOST DISEASE
     Route: 065
     Dates: start: 20160717
  25. PROGRAF [Concomitant]
     Active Substance: TACROLIMUS\TACROLIMUS ANHYDROUS
     Indication: PROPHYLAXIS AGAINST GRAFT VERSUS HOST DISEASE
     Dosage: 6-1.6 MG/DAY (ADJUSTED WITH TROUGH VALUE)
     Route: 048
     Dates: start: 20160406, end: 20160716
  26. ACICLOVIR [Concomitant]
     Active Substance: ACYCLOVIR
     Indication: INFECTION PROPHYLAXIS
     Route: 048
     Dates: start: 20160312, end: 20160716
  27. LANTUS [Concomitant]
     Active Substance: INSULIN GLARGINE
     Indication: HYPERGLYCAEMIA
     Dosage: UNKNOWN DOSE, SLIDING SCALE
     Route: 058
     Dates: start: 20160502
  28. TRANSAMIN [Concomitant]
     Active Substance: TRANEXAMIC ACID
     Indication: BRONCHOPULMONARY ASPERGILLOSIS
     Route: 065
     Dates: start: 20160716
  29. NOR-ADRENALIN                      /00127503/ [Concomitant]
     Indication: SEPSIS
     Dosage: 0.1 GAMMAS, UNKNOWN FREQ.
     Route: 065
     Dates: start: 20160718
  30. MIDAZOLAM [Concomitant]
     Active Substance: MIDAZOLAM HYDROCHLORIDE
     Indication: RESPIRATORY THERAPY
     Dosage: 1 ML/H, UNKNOWN FREQ.
     Route: 065
     Dates: start: 20160716
  31. MEDROL [Suspect]
     Active Substance: METHYLPREDNISOLONE
     Indication: PROPHYLAXIS AGAINST GRAFT VERSUS HOST DISEASE
     Dosage: 60-4 MG/DAY (DURING TAPERING)
     Route: 048
     Dates: start: 20160310, end: 20160716
  32. VASOLAN                            /00014302/ [Concomitant]
     Active Substance: VERAPAMIL HYDROCHLORIDE
     Indication: ARRHYTHMIA PROPHYLAXIS
     Route: 048
     Dates: start: 20160412, end: 20160716
  33. HUMALOG [Concomitant]
     Active Substance: INSULIN LISPRO
     Indication: HYPERGLYCAEMIA
     Route: 058
     Dates: start: 20160426
  34. NOVOLIN R [Concomitant]
     Active Substance: INSULIN HUMAN
     Indication: HYPERGLYCAEMIA
     Dosage: UNKNOWN DOSE, SLIDING SCALE
     Route: 058
     Dates: start: 20160609
  35. SOLU-MEDROL [Concomitant]
     Active Substance: METHYLPREDNISOLONE SODIUM SUCCINATE
     Indication: ASCITES
     Dosage: DOSE UNKNOWN
     Route: 065
     Dates: start: 20160627, end: 20160708
  36. DOPAMINE                           /00360702/ [Concomitant]
     Indication: SEPSIS
     Dosage: 3 GAMMAS, UNKNOWN FREQ.
     Route: 065
     Dates: start: 20160718
  37. FENTANYL                           /00174602/ [Concomitant]
     Active Substance: FENTANYL
     Indication: RESPIRATORY THERAPY
     Dosage: 2 ML/H
     Route: 065
     Dates: start: 20160716
  38. OMEPRAZOLE                         /00661202/ [Concomitant]
     Indication: PROPHYLAXIS
     Route: 065
     Dates: start: 20160717

REACTIONS (5)
  - Sepsis [Not Recovered/Not Resolved]
  - Acute kidney injury [Not Recovered/Not Resolved]
  - Acute graft versus host disease in intestine [Recovered/Resolved]
  - Ascites [Not Recovered/Not Resolved]
  - Bronchopulmonary aspergillosis [Fatal]

NARRATIVE: CASE EVENT DATE: 20160310
